FAERS Safety Report 14385040 (Version 7)
Quarter: 2018Q1

REPORT INFORMATION
  Report Type: Spontaneous
  Country: FR (occurrence: FR)
  Receive Date: 20180115
  Receipt Date: 20180115
  Transmission Date: 20180509
  Serious: Yes (Hospitalization, Disabling)
  Sender: FDA-Public Use
  Company Number: FR-CONCORDIA PHARMACEUTICALS INC.-E2B_00009465

PATIENT
  Age: 36 Year
  Sex: Male
  Weight: 80 kg

DRUGS (2)
  1. PREDNISOLONE. [Suspect]
     Active Substance: PREDNISOLONE
     Indication: BACK PAIN
     Route: 024
  2. IOPAMIRON [Concomitant]
     Active Substance: IOPAMIDOL
     Dosage: IOPAMIRON 300 (300 MG DIODE/ML), SOLUTION INJECTABLE
     Route: 024
     Dates: start: 20170627, end: 20170627

REACTIONS (2)
  - Spinal cord ischaemia [Unknown]
  - Paraplegia [Unknown]

NARRATIVE: CASE EVENT DATE: 20170627
